FAERS Safety Report 7275732-0 (Version None)
Quarter: 2011Q1

REPORT INFORMATION
  Report Type: 
  Country: None (occurrence: None)
  Receive Date: 20110202
  Receipt Date: 20110202
  Transmission Date: 20110831
  Serious: Yes (Other)
  Sender: FDA-Public Use
  Company Number: None

PATIENT
  Sex: Female

DRUGS (1)
  1. SHEERWHITE TOOTH WHITENING FILM [Suspect]
     Indication: DENTAL COSMETIC PROCEDURE
     Dosage: 1 FILM OVERNIGHT DENTAL
     Route: 004
     Dates: start: 20110107, end: 20110108

REACTIONS (2)
  - ORAL PAIN [None]
  - SOFT TISSUE HAEMORRHAGE [None]
